FAERS Safety Report 6323881-3 (Version None)
Quarter: 2009Q3

REPORT INFORMATION
  Report Type: 
  Country: None (occurrence: None)
  Receive Date: 20090824
  Receipt Date: 20090417
  Transmission Date: 20100115
  Serious: No
  Sender: FDA-Public Use
  Company Number: US-ABBOTT-09P-163-0569041-00

PATIENT
  Sex: Female

DRUGS (4)
  1. NIASPAN [Suspect]
     Indication: BLOOD TRIGLYCERIDES INCREASED
     Dates: start: 20081201, end: 20090101
  2. NIASPAN [Suspect]
     Dates: start: 20090410
  3. ASPIRIN [Concomitant]
     Indication: PROPHYLAXIS
     Dates: start: 20081201, end: 20090101
  4. LOVAZA [Concomitant]
     Indication: DRUG USE FOR UNKNOWN INDICATION
     Dates: end: 20090101

REACTIONS (4)
  - ABDOMINAL PAIN [None]
  - EYE HAEMORRHAGE [None]
  - FLUSHING [None]
  - MALAISE [None]
